FAERS Safety Report 18156314 (Version 2)
Quarter: 2020Q3

REPORT INFORMATION
  Report Type: Spontaneous
  Country: DE (occurrence: DE)
  Receive Date: 20200817
  Receipt Date: 20200820
  Transmission Date: 20201103
  Serious: Yes (Death)
  Sender: FDA-Public Use
  Company Number: DE-MYLANLABS-2020M1071781

PATIENT
  Age: 64 Year
  Sex: Female
  Weight: 120 kg

DRUGS (2)
  1. METHOTREXATE. [Suspect]
     Active Substance: METHOTREXATE
     Indication: RHEUMATOID ARTHRITIS
     Dosage: DAILY DOSE: 25 MG MILLGRAM(S) EVERY WEEKS
     Route: 058
     Dates: start: 2018, end: 20200527
  2. METAMIZOL                          /06276701/ [Suspect]
     Active Substance: METAMIZOLE
     Indication: PAIN
     Dosage: 1 GRAM (1?3X TGL.)
     Route: 048
     Dates: end: 202005

REACTIONS (7)
  - Drug titration error [Fatal]
  - Product monitoring error [Fatal]
  - Pancytopenia [Fatal]
  - Immunosuppressant drug level increased [Fatal]
  - Multiple organ dysfunction syndrome [Fatal]
  - Myelosuppression [Fatal]
  - Sepsis [Fatal]

NARRATIVE: CASE EVENT DATE: 202005
